FAERS Safety Report 8962159 (Version 1)
Quarter: 2012Q4

REPORT INFORMATION
  Report Type: 
  Country: US (occurrence: US)
  Receive Date: 20121212
  Receipt Date: 20121212
  Transmission Date: 20130627
  Serious: No
  Sender: FDA-Public Use
  Company Number: US-PFIZER INC-2012312109

PATIENT
  Age: 54 Year
  Sex: Female
  Weight: 79.37 kg

DRUGS (3)
  1. CHANTIX [Suspect]
     Indication: SMOKING CESSATION THERAPY
     Dosage: 0.5 mg, daily
     Dates: start: 20121201, end: 201212
  2. CHANTIX [Suspect]
     Dosage: 1 mg, daily
     Dates: start: 20121208, end: 20121210
  3. ZYRTEC [Concomitant]
     Indication: ALLERGY
     Dosage: 10 mg, UNK

REACTIONS (11)
  - Disturbance in attention [Unknown]
  - Dissociation [Unknown]
  - Confusional state [Unknown]
  - Anger [Unknown]
  - Mood swings [Unknown]
  - Asthenia [Unknown]
  - Nausea [Unknown]
  - Feeling abnormal [Unknown]
  - Crying [Unknown]
  - Violence-related symptom [Unknown]
  - Feeling abnormal [Unknown]
